FAERS Safety Report 5101959-X (Version None)
Quarter: 2006Q3

REPORT INFORMATION
  Report Type: 
  Country: None (occurrence: None)
  Receive Date: 20060907
  Receipt Date: 20060830
  Transmission Date: 20061208
  Serious: Yes (Other)
  Sender: FDA-Public Use
  Company Number: 2006US-03368

PATIENT

DRUGS (1)
  1. ISOTRETINOIN [Suspect]

REACTIONS (2)
  - DEPRESSED MOOD [None]
  - WEIGHT INCREASED [None]
